FAERS Safety Report 4307648-3 (Version None)
Quarter: 2004Q1

REPORT INFORMATION
  Report Type: 
  Country: None (occurrence: None)
  Receive Date: 20040227
  Receipt Date: 20040227
  Transmission Date: 20041129
  Serious: No
  Sender: FDA-Public Use
  Company Number: None

PATIENT
  Sex: Female
  Weight: 78.0187 kg

DRUGS (1)
  1. ZOCOR [Suspect]
     Indication: DYSLIPIDAEMIA
     Dosage: 20 MG ONCE A DAY A ORAL
     Route: 048
     Dates: start: 20010318, end: 20040224

REACTIONS (3)
  - MOVEMENT DISORDER [None]
  - PARAESTHESIA [None]
  - SENSORY LOSS [None]
